FAERS Safety Report 5063573-4 (Version None)
Quarter: 2006Q3

REPORT INFORMATION
  Report Type: 
  Country: None (occurrence: None)
  Receive Date: 20060727
  Receipt Date: 20060720
  Transmission Date: 20061208
  Serious: Yes (Hospitalization)
  Sender: FDA-Public Use
  Company Number: FR-ROCHE-456295

PATIENT
  Age: 63 Year
  Sex: Male

DRUGS (2)
  1. APRANAX [Suspect]
     Indication: DRUG USE FOR UNKNOWN INDICATION
     Route: 048
     Dates: start: 20060427
  2. COVERSYL [Concomitant]
     Route: 048
     Dates: start: 20041221

REACTIONS (3)
  - MALAISE [None]
  - PALLOR [None]
  - SOMNOLENCE [None]
